FAERS Safety Report 9172146 (Version 1)
Quarter: 2013Q1

REPORT INFORMATION
  Report Type: Spontaneous
  Country: US (occurrence: US)
  Receive Date: 20130319
  Receipt Date: 20130319
  Transmission Date: 20140127
  Serious: No
  Sender: FDA-Public Use
  Company Number: US-BAYER-2013-032082

PATIENT
  Age: 73 Year
  Sex: Female
  Weight: 72.56 kg

DRUGS (9)
  1. ALEVE CAPLET/TABLET,MIDOL EXTENDED RELIEF CAPLET [Suspect]
     Indication: HEADACHE
     Dosage: UNK UNK, QD
     Dates: start: 20130214
  2. TYLENOL EXTRA-STRENGTH [Concomitant]
     Indication: HEADACHE
  3. SIMVASTATIN [Concomitant]
     Indication: HYPERCHOLESTEROLAEMIA
  4. ASPIRIN [ACETYLSALICYLIC ACID] [Concomitant]
  5. GLUCOSAMINE [GLUCOSAMINE] [Concomitant]
     Indication: BONE DISORDER
     Dosage: UNK UNK, BID
  6. CHONDROITIN [Concomitant]
     Indication: BONE DISORDER
     Dosage: UNK UNK, BID
  7. VITAMINS [Concomitant]
  8. CALCIUM [CALCIUM] [Concomitant]
     Indication: BONE DISORDER
  9. MOTRIN [Concomitant]
     Indication: HEADACHE
     Dosage: 800 MG, UNK
     Dates: start: 20130214

REACTIONS (1)
  - Drug ineffective [None]
